FAERS Safety Report 5622872-5 (Version None)
Quarter: 2008Q1

REPORT INFORMATION
  Report Type: 
  Country: None (occurrence: None)
  Receive Date: 20080205
  Receipt Date: 20080128
  Transmission Date: 20080703
  Serious: Yes (Other)
  Sender: FDA-Public Use
  Company Number: 2008002562

PATIENT
  Age: 46 Year
  Sex: Female
  Weight: 47.6 kg

DRUGS (3)
  1. ZYRTEC-D 12 HOUR [Suspect]
     Indication: HYPERSENSITIVITY
     Dosage: 1 TABLET EVERY 12 HOURS, ORAL
     Route: 048
     Dates: start: 20080127, end: 20080127
  2. SINGULAIR [Concomitant]
  3. ADVAIR DISKUS 100/50 [Concomitant]

REACTIONS (5)
  - DYSPNOEA [None]
  - GLOSSODYNIA [None]
  - OEDEMA MOUTH [None]
  - ORAL PAIN [None]
  - SWOLLEN TONGUE [None]
